FAERS Safety Report 21779280 (Version 2)
Quarter: 2023Q1

REPORT INFORMATION
  Report Type: Spontaneous
  Country: IT (occurrence: IT)
  Receive Date: 20221226
  Receipt Date: 20230103
  Transmission Date: 20230417
  Serious: Yes (Other)
  Sender: FDA-Public Use
  Company Number: IT-BIOVITRUM-2022IT15028

PATIENT
  Age: 4 Year
  Sex: Male

DRUGS (11)
  1. ANAKINRA [Suspect]
     Active Substance: ANAKINRA
     Indication: Product used for unknown indication
     Dates: start: 201702, end: 201710
  2. ANAKINRA [Suspect]
     Active Substance: ANAKINRA
     Dates: start: 201711, end: 201712
  3. ANAKINRA [Suspect]
     Active Substance: ANAKINRA
     Dates: start: 201711, end: 201712
  4. ANAKINRA [Suspect]
     Active Substance: ANAKINRA
     Dates: start: 201801
  5. ANAKINRA [Suspect]
     Active Substance: ANAKINRA
     Dates: start: 202004
  6. UNSPECIFIED INGREDIENT [Concomitant]
     Active Substance: UNSPECIFIED INGREDIENT
     Dates: start: 201711, end: 201712
  7. UNSPECIFIED INGREDIENT [Concomitant]
     Active Substance: UNSPECIFIED INGREDIENT
     Dates: start: 201905, end: 202004
  8. UNSPECIFIED INGREDIENT [Concomitant]
     Active Substance: UNSPECIFIED INGREDIENT
     Dates: start: 202004
  9. CANAKINUMAB [Concomitant]
     Active Substance: CANAKINUMAB
     Dates: start: 201806, end: 201904
  10. CYCLOSPORINE [Concomitant]
     Active Substance: CYCLOSPORINE
     Dates: start: 201806, end: 201904
  11. CYCLOSPORINE [Concomitant]
     Active Substance: CYCLOSPORINE
     Dates: start: 201905, end: 202004

REACTIONS (14)
  - Pulmonary hypertension [Unknown]
  - Lymphoproliferative disorder [Unknown]
  - Pulmonary fibrosis [Unknown]
  - Pyrexia [Unknown]
  - Lymphadenopathy [Unknown]
  - Arthritis [Unknown]
  - Splenomegaly [Unknown]
  - Hepatomegaly [Unknown]
  - Lymphoid hyperplasia of intestine [Unknown]
  - Therapy partial responder [Unknown]
  - Adverse drug reaction [Unknown]
  - Interleukin level increased [Unknown]
  - Rash [Unknown]
  - Off label use [Not Recovered/Not Resolved]

NARRATIVE: CASE EVENT DATE: 20170201
